FAERS Safety Report 7031172-0 (Version None)
Quarter: 2010Q4

REPORT INFORMATION
  Report Type: 
  Country: None (occurrence: None)
  Receive Date: 20101006
  Receipt Date: 20100928
  Transmission Date: 20110411
  Serious: Yes (Death)
  Sender: FDA-Public Use
  Company Number: US-AMGEN-QUU441845

PATIENT
  Sex: Male

DRUGS (3)
  1. NPLATE [Suspect]
     Indication: IDIOPATHIC THROMBOCYTOPENIC PURPURA
     Dates: start: 20090406
  2. IMMU-G [Concomitant]
     Dates: start: 19990101, end: 19990101
  3. PREDNISONE [Concomitant]
     Dates: start: 20030801, end: 20090312

REACTIONS (1)
  - DEATH [None]
